FAERS Safety Report 9056841 (Version 1)
Quarter: 2013Q1

REPORT INFORMATION
  Report Type: Spontaneous
  Country: US (occurrence: US)
  Receive Date: 20130201
  Receipt Date: 20130201
  Transmission Date: 20140127
  Serious: Yes (Death)
  Sender: FDA-Public Use
  Company Number: US-GLAXOSMITHKLINE-A1009935A

PATIENT
  Age: 65 Year
  Sex: Male

DRUGS (1)
  1. ADVAIR [Suspect]
     Indication: PULMONARY FUNCTION TEST DECREASED
     Route: 055

REACTIONS (1)
  - Cardiac disorder [Fatal]
